FAERS Safety Report 8020605-9 (Version None)
Quarter: 2012Q1

REPORT INFORMATION
  Report Type: 
  Country: None (occurrence: None)
  Receive Date: 20120103
  Receipt Date: 20111223
  Transmission Date: 20120608
  Serious: Yes (Hospitalization)
  Sender: FDA-Public Use
  Company Number: US-ASTRAZENECA-2011SE49224

PATIENT
  Age: 55 Year
  Sex: Male
  Weight: 86 kg

DRUGS (4)
  1. TOPROL-XL [Suspect]
     Route: 048
  2. PLAVIX [Concomitant]
  3. VYTORIN [Concomitant]
     Dosage: 10-80 MG, TAKE ONE TABLET DAILY IN THE EVENING
  4. IMDUR [Concomitant]

REACTIONS (4)
  - DYSLIPIDAEMIA [None]
  - HYPERTENSION [None]
  - CORONARY ARTERY DISEASE [None]
  - CAROTID ARTERY OCCLUSION [None]
